FAERS Safety Report 4978188-3 (Version None)
Quarter: 2006Q2

REPORT INFORMATION
  Report Type: 
  Country: None (occurrence: None)
  Receive Date: 20060420
  Receipt Date: 20060328
  Transmission Date: 20061013
  Serious: Yes (Disabling)
  Sender: FDA-Public Use
  Company Number: RO-ROCHE-441988

PATIENT
  Age: 64 Year
  Sex: Female

DRUGS (3)
  1. PEGASYS [Suspect]
     Dosage: - REPORTED FORMULATION: PRE-FILLED SYRINGE (PFS). - DOSAGE REGIMEN REPORTED: WEEKLY.
     Route: 058
     Dates: start: 20050515
  2. COPEGUS [Suspect]
     Route: 048
     Dates: start: 20050515, end: 20050915
  3. COPEGUS [Suspect]
     Route: 048
     Dates: start: 20050915

REACTIONS (7)
  - ALOPECIA [None]
  - ASTHENIA [None]
  - CYTOLYTIC HEPATITIS [None]
  - DEPRESSION [None]
  - HYPERAESTHESIA [None]
  - LEUKOPENIA [None]
  - THROMBOCYTOPENIA [None]
